FAERS Safety Report 7331119-3 (Version None)
Quarter: 2011Q1

REPORT INFORMATION
  Report Type: 
  Country: None (occurrence: None)
  Receive Date: 20110304
  Receipt Date: 20110223
  Transmission Date: 20110831
  Serious: Yes (Hospitalization)
  Sender: FDA-Public Use
  Company Number: CA-JNJFOC-20100605850

PATIENT
  Sex: Female
  Weight: 66 kg

DRUGS (8)
  1. PRILOSEC [Concomitant]
     Route: 048
  2. REMICADE [Suspect]
     Dosage: EVERY 6-8 WEEKS
     Route: 042
  3. PLAQUENIL [Concomitant]
     Indication: RHEUMATOID ARTHRITIS
     Route: 048
  4. REMICADE [Suspect]
     Indication: RHEUMATOID ARTHRITIS
     Dosage: EVERY 6-8 WEEKS; 12 INFUSIONS TO DATE
     Route: 042
  5. DICLOFENAC SODIUM SR [Suspect]
     Indication: RHEUMATOID ARTHRITIS
     Route: 048
  6. FOLIC ACID [Concomitant]
  7. REMICADE [Suspect]
     Route: 042
  8. ALENDRONATE [Concomitant]
     Route: 048

REACTIONS (6)
  - HIATUS HERNIA [None]
  - CHEST DISCOMFORT [None]
  - VISION BLURRED [None]
  - NON-CARDIAC CHEST PAIN [None]
  - GASTRITIS [None]
  - PALPITATIONS [None]
